FAERS Safety Report 21732567 (Version 1)
Quarter: 2022Q4

REPORT INFORMATION
  Report Type: Spontaneous
  Country: US (occurrence: US)
  Receive Date: 20221215
  Receipt Date: 20221215
  Transmission Date: 20230112
  Serious: No
  Sender: FDA-Public Use
  Company Number: US-ORGANON-O2211USA002224

PATIENT
  Sex: Female
  Weight: 59.41 kg

DRUGS (1)
  1. NEXPLANON [Suspect]
     Active Substance: ETONOGESTREL
     Dosage: 1 IMPLANT, ONE EVERY THREE YEARS (ON LEFT ARM)
     Route: 059
     Dates: start: 2021, end: 20221122

REACTIONS (3)
  - Device kink [Recovered/Resolved]
  - Complication of device removal [Recovered/Resolved]
  - No adverse event [Unknown]
